FAERS Safety Report 5691575-3 (Version None)
Quarter: 2008Q2

REPORT INFORMATION
  Report Type: 
  Country: None (occurrence: None)
  Receive Date: 20080402
  Receipt Date: 20080325
  Transmission Date: 20081010
  Serious: Yes (Other)
  Sender: FDA-Public Use
  Company Number: US-JNJFOC-20080305567

PATIENT
  Age: 60 Year
  Sex: Female

DRUGS (8)
  1. REMICADE [Suspect]
     Route: 042
     Dates: start: 19990101, end: 20010101
  2. REMICADE [Suspect]
     Indication: RHEUMATOID ARTHRITIS
     Route: 042
     Dates: start: 19990101, end: 20010101
  3. PREDNISONE [Concomitant]
     Indication: RHEUMATOID ARTHRITIS
     Route: 048
  4. VICODIN [Concomitant]
     Indication: PAIN
  5. CELEBREX [Concomitant]
     Indication: PAIN
  6. METHOTREXATE [Concomitant]
     Indication: RHEUMATOID ARTHRITIS
  7. LOTREL [Concomitant]
     Indication: HYPERTENSION
  8. DARVOCET [Concomitant]
     Indication: PAIN

REACTIONS (3)
  - ANKLE OPERATION [None]
  - KNEE ARTHROPLASTY [None]
  - WEIGHT INCREASED [None]
